FAERS Safety Report 5442714-0 (Version None)
Quarter: 2007Q3

REPORT INFORMATION
  Report Type: 
  Country: None (occurrence: None)
  Receive Date: 20070904
  Receipt Date: 20070816
  Transmission Date: 20080115
  Serious: No
  Sender: FDA-Public Use
  Company Number: US-BOEHRINGER INGELHEIM PHARMACEUTICALS, INC.-2007-BP-19394BP

PATIENT
  Sex: Female

DRUGS (3)
  1. SPIRIVA [Suspect]
     Indication: ASTHMA
     Route: 055
     Dates: start: 20070604, end: 20070620
  2. ALBUTEROL NEBS (PORTABLE) [Concomitant]
     Indication: ASTHMA
  3. PULMICORT [Concomitant]
     Indication: ASTHMA

REACTIONS (3)
  - CHEST PAIN [None]
  - DRUG DISPENSING ERROR [None]
  - NASAL CONGESTION [None]
